FAERS Safety Report 4838287-3 (Version None)
Quarter: 2005Q4

REPORT INFORMATION
  Report Type: 
  Country: None (occurrence: None)
  Receive Date: 20051128
  Receipt Date: 20050725
  Transmission Date: 20060501
  Serious: Yes (Hospitalization, Disabling)
  Sender: FDA-Public Use
  Company Number: US-MERCK-0507USA03899

PATIENT
  Age: 53 Year
  Sex: Male
  Weight: 57 kg

DRUGS (3)
  1. VIOXX [Suspect]
     Indication: SHOULDER PAIN
     Route: 048
     Dates: start: 19991228, end: 20020817
  2. IBUPROFEN [Concomitant]
     Indication: PAIN
     Route: 065
     Dates: start: 20000828
  3. CARDURA [Concomitant]
     Indication: HYPERTENSION
     Route: 065
     Dates: start: 19990616

REACTIONS (3)
  - BLADDER DISORDER [None]
  - BLOOD CHOLESTEROL INCREASED [None]
  - MYOCARDIAL INFARCTION [None]
